FAERS Safety Report 23934500 (Version 2)
Quarter: 2024Q4

REPORT INFORMATION
  Report Type: Report from Study
  Country: US (occurrence: US)
  Receive Date: 20240603
  Receipt Date: 20241004
  Transmission Date: 20250115
  Serious: No
  Sender: GENMAB
  Company Number: US-GENMAB-2024-01006

PATIENT
  Sex: Female

DRUGS (1)
  1. EPKINLY [Suspect]
     Active Substance: EPCORITAMAB-BYSP
     Indication: Burkitt^s lymphoma stage III
     Dosage: STRENGTH 48 MILLIGRAM, DOSE 48 MILLIGRAM, FREQUENCY: EVERY 14 DAYS (EVERY OTHER WEEK)
     Route: 058
     Dates: start: 20240313

REACTIONS (1)
  - Off label use [Unknown]
